FAERS Safety Report 7190557-2 (Version None)
Quarter: 2010Q4

REPORT INFORMATION
  Report Type: 
  Country: None (occurrence: None)
  Receive Date: 20101223
  Receipt Date: 20101222
  Transmission Date: 20110411
  Serious: Yes (Death)
  Sender: FDA-Public Use
  Company Number: FR-PFIZER INC-2009290263

PATIENT
  Age: 30 Year
  Sex: Female

DRUGS (8)
  1. TRIFLUCAN [Suspect]
     Indication: MENINGITIS CRYPTOCOCCAL
     Dosage: 200 MG, 2X/DAY
     Route: 048
     Dates: start: 20090716, end: 20090729
  2. ETRAVIRINE [Suspect]
     Indication: HIV INFECTION
     Dosage: 1 DF, 2X/DAY
     Route: 048
     Dates: end: 20090729
  3. TRUVADA [Suspect]
     Indication: HIV INFECTION
     Dosage: 1 DF, 1X/DAY
     Route: 048
     Dates: end: 20090729
  4. MABTHERA [Suspect]
     Indication: NON-HODGKIN'S LYMPHOMA
     Dosage: UNK
     Route: 042
     Dates: start: 20090323, end: 20090710
  5. VINCRISTINE SULFATE [Suspect]
     Indication: NON-HODGKIN'S LYMPHOMA
     Dosage: UNK
     Route: 042
     Dates: start: 20090323, end: 20090710
  6. DOXORUBICIN HYDROCHLORIDE [Suspect]
     Indication: NON-HODGKIN'S LYMPHOMA
     Dosage: UNK
     Route: 042
     Dates: start: 20090323, end: 20090710
  7. CANCIDAS [Concomitant]
     Dosage: UNK
     Dates: start: 20090713
  8. NEULASTA [Concomitant]

REACTIONS (2)
  - CARDIO-RESPIRATORY ARREST [None]
  - TORSADE DE POINTES [None]
